FAERS Safety Report 10592870 (Version 2)
Quarter: 2014Q4

REPORT INFORMATION
  Report Type: Spontaneous
  Country: DE (occurrence: DE)
  Receive Date: 20141119
  Receipt Date: 20141212
  Transmission Date: 20150529
  Serious: Yes (Other)
  Sender: FDA-Public Use
  Company Number: DE-AMGEN-DEUSP2014088624

PATIENT
  Age: 76 Year
  Sex: Female

DRUGS (2)
  1. PROLIA [Suspect]
     Active Substance: DENOSUMAB
     Indication: OSTEOPOROSIS
     Dosage: UNK
     Route: 065
     Dates: start: 201304, end: 201409
  2. CALCIUM [Concomitant]
     Active Substance: CALCIUM
     Dosage: 600 MG, QD

REACTIONS (5)
  - Paralysis [Recovering/Resolving]
  - Pain [Recovering/Resolving]
  - Activities of daily living impaired [Unknown]
  - Incontinence [Recovering/Resolving]
  - Mobility decreased [Recovering/Resolving]
